FAERS Safety Report 7762598-5 (Version None)
Quarter: 2011Q3

REPORT INFORMATION
  Report Type: 
  Country: None (occurrence: None)
  Receive Date: 20110920
  Receipt Date: 20110919
  Transmission Date: 20111222
  Serious: Yes (Death)
  Sender: FDA-Public Use
  Company Number: US-GLAXOSMITHKLINE-A0918182A

PATIENT
  Sex: Male

DRUGS (1)
  1. ROSIGLITAZONE MALEATE [Suspect]
     Indication: DIABETES MELLITUS
     Route: 048
     Dates: start: 20010701, end: 20081001

REACTIONS (9)
  - PAIN IN EXTREMITY [None]
  - CORONARY ARTERY BYPASS [None]
  - DEATH [None]
  - MUSCLE SPASMS [None]
  - CARDIAC FAILURE CONGESTIVE [None]
  - CARDIAC DISORDER [None]
  - MYOCARDIAL INFARCTION [None]
  - GAIT DISTURBANCE [None]
  - DEMENTIA [None]
